FAERS Safety Report 23821168 (Version 2)
Quarter: 2024Q2

REPORT INFORMATION
  Report Type: Spontaneous
  Country: US (occurrence: US)
  Receive Date: 20240506
  Receipt Date: 20240627
  Transmission Date: 20240715
  Serious: No
  Sender: FDA-Public Use
  Company Number: US-BAYER-2024A062559

PATIENT
  Age: 81 Year
  Sex: Male

DRUGS (1)
  1. ALEVE [Suspect]
     Active Substance: NAPROXEN SODIUM
     Indication: Pain
     Dosage: UNK
     Route: 048
     Dates: start: 20240418, end: 20240418

REACTIONS (3)
  - Oral discomfort [Recovered/Resolved]
  - Product contamination physical [None]
  - Suspected product quality issue [None]

NARRATIVE: CASE EVENT DATE: 20240418
